FAERS Safety Report 6264586-7 (Version None)
Quarter: 2009Q3

REPORT INFORMATION
  Report Type: 
  Country: None (occurrence: None)
  Receive Date: 20090710
  Receipt Date: 20090629
  Transmission Date: 20100115
  Serious: Yes (Other)
  Sender: FDA-Public Use
  Company Number: PHHY2009HN26221

PATIENT
  Sex: Female

DRUGS (1)
  1. DIOVAN HCT [Suspect]
     Dosage: 160/12.5/DAY
     Route: 048

REACTIONS (4)
  - ARTHRITIS [None]
  - HYPOTENSION [None]
  - SURGERY [None]
  - WEIGHT DECREASED [None]
